FAERS Safety Report 14183160 (Version 4)
Quarter: 2021Q2

REPORT INFORMATION
  Report Type: Spontaneous
  Country: US (occurrence: US)
  Receive Date: 20171113
  Receipt Date: 20210415
  Transmission Date: 20210716
  Serious: No
  Sender: FDA-Public Use
  Company Number: US-PFIZER INC-2017483681

PATIENT
  Age: 60 Year
  Sex: Female

DRUGS (10)
  1. TRASTUZUMAB. [Concomitant]
     Active Substance: TRASTUZUMAB
     Indication: CHEMOTHERAPY
     Dosage: UNK
  2. GLIMEPIRIDE. [Concomitant]
     Active Substance: GLIMEPIRIDE
     Dosage: UNK
     Dates: start: 20100101
  3. TAXOTERE [Suspect]
     Active Substance: DOCETAXEL
     Indication: TRIPLE POSITIVE BREAST CANCER
     Dosage: 170 UNK, CYCLIC (EVERY THREE WEEKS FOR 06 CYCLES)
     Dates: start: 20160922, end: 20170201
  4. PERTUZUMAB. [Concomitant]
     Active Substance: PERTUZUMAB
     Indication: CHEMOTHERAPY
     Dosage: UNK
  5. JANUMET [Concomitant]
     Active Substance: METFORMIN HYDROCHLORIDE\SITAGLIPTIN PHOSPHATE
     Dosage: UNK
     Dates: start: 20100101
  6. ASPIRIN. [Concomitant]
     Active Substance: ASPIRIN
     Dosage: UNK
     Dates: start: 20000101
  7. ASA [Concomitant]
     Active Substance: ASPIRIN
     Dosage: UNK
  8. PARAPLATIN [Concomitant]
     Active Substance: CARBOPLATIN
     Indication: CHEMOTHERAPY
     Dosage: UNK
  9. SIMVASTATIN. [Concomitant]
     Active Substance: SIMVASTATIN
     Dosage: UNK
     Dates: start: 20050101
  10. DOCETAXEL. [Suspect]
     Active Substance: DOCETAXEL
     Indication: TRIPLE POSITIVE BREAST CANCER
     Dosage: 170 UNK, CYCLIC (EVERY THREE WEEKS FOR 06 CYCLES)
     Dates: start: 20160922, end: 20170201

REACTIONS (2)
  - Alopecia [Not Recovered/Not Resolved]
  - Madarosis [Not Recovered/Not Resolved]

NARRATIVE: CASE EVENT DATE: 20170901
